FAERS Safety Report 25435215 (Version 1)
Quarter: 2025Q2

REPORT INFORMATION
  Report Type: Spontaneous
  Country: AU (occurrence: AU)
  Receive Date: 20250613
  Receipt Date: 20250613
  Transmission Date: 20250717
  Serious: Yes (Death, Other)
  Sender: AMGEN
  Company Number: AU-AMGEN-AUSSP2025112308

PATIENT

DRUGS (1)
  1. CINACALCET HYDROCHLORIDE [Suspect]
     Active Substance: CINACALCET HYDROCHLORIDE
     Indication: Renal transplant
     Route: 065

REACTIONS (9)
  - Death [Fatal]
  - Spinal fracture [Unknown]
  - Multiple fractures [Unknown]
  - Lower limb fracture [Unknown]
  - Upper limb fracture [Unknown]
  - Clavicle fracture [Unknown]
  - Rib fracture [Unknown]
  - Foot fracture [Unknown]
  - Wrist fracture [Unknown]
